FAERS Safety Report 7293547-4 (Version None)
Quarter: 2011Q1

REPORT INFORMATION
  Report Type: 
  Country: None (occurrence: None)
  Receive Date: 20110204
  Receipt Date: 20110122
  Transmission Date: 20110831
  Serious: Yes (Hospitalization)
  Sender: FDA-Public Use
  Company Number: 2011000338

PATIENT
  Age: 66 Year
  Sex: Male
  Weight: 75.5 kg

DRUGS (4)
  1. IMC-A12 [Suspect]
     Indication: ADENOCARCINOMA PANCREAS
     Dosage: (6 MG/KG, OVER 60 MIN ON DAYS 1, 8, 15 AND 22), INTRAVENOUS
     Route: 042
     Dates: start: 20100908
  2. AVELOX [Concomitant]
  3. GEMCITABINE [Suspect]
     Indication: ADENOCARCINOMA PANCREAS
     Dosage: (1000 MG/M2, CYCLIC: OVER 30 MIN DAYS 1, 8 AND 15) INTRAVEOUS
     Route: 042
     Dates: start: 20100908
  4. ERLOTINIB HYDROCHLORIDE [Suspect]
     Indication: ADENOCARCINOMA PANCREAS
     Dosage: (100 MG, QD), ORAL
     Route: 048
     Dates: start: 20100908

REACTIONS (6)
  - DEHYDRATION [None]
  - NAUSEA [None]
  - BLOOD CREATININE INCREASED [None]
  - BLOOD BILIRUBIN INCREASED [None]
  - DIARRHOEA [None]
  - HAEMOGLOBIN DECREASED [None]
